FAERS Safety Report 23685446 (Version 1)
Quarter: 2024Q1

REPORT INFORMATION
  Report Type: Spontaneous
  Country: CA (occurrence: CA)
  Receive Date: 20240329
  Receipt Date: 20240329
  Transmission Date: 20240410
  Serious: Yes (Other)
  Sender: FDA-Public Use
  Company Number: CA-002147023-NVSC2023CA031305

PATIENT
  Age: 49 Year
  Sex: Female

DRUGS (20)
  1. ERGOCALCIFEROL [Suspect]
     Active Substance: ERGOCALCIFEROL
     Indication: Rheumatoid arthritis
     Dosage: UNK
     Route: 065
  2. FOLIC ACID [Suspect]
     Active Substance: FOLIC ACID
     Indication: Product used for unknown indication
     Dosage: 5.0 MG, QD
     Route: 065
  3. HYDROXYCHLOROQUINE [Suspect]
     Active Substance: HYDROXYCHLOROQUINE
     Indication: Product used for unknown indication
     Dosage: 200.0 MG, QD
     Route: 048
  4. LEFLUNOMIDE [Suspect]
     Active Substance: LEFLUNOMIDE
     Dosage: 10.0 MG
     Route: 048
  5. LEFLUNOMIDE [Suspect]
     Active Substance: LEFLUNOMIDE
     Indication: Rheumatoid arthritis
     Dosage: 20.0 MG, QD
     Route: 048
  6. LEFLUNOMIDE [Suspect]
     Active Substance: LEFLUNOMIDE
     Dosage: UNK
     Route: 065
  7. LEVOTHYROXINE SODIUM [Suspect]
     Active Substance: LEVOTHYROXINE SODIUM
     Indication: Product used for unknown indication
     Dosage: 100.0 MG, QD
     Route: 048
  8. METFORMIN [Suspect]
     Active Substance: METFORMIN HYDROCHLORIDE
     Indication: Product used for unknown indication
     Dosage: 500.0 MG
     Route: 048
  9. METHOTREXATE [Suspect]
     Active Substance: METHOTREXATE
     Indication: Product used for unknown indication
     Dosage: 10.0 MG, QW
     Route: 048
  10. METHOTREXATE [Suspect]
     Active Substance: METHOTREXATE
     Dosage: 20.0 MG,
     Route: 065
  11. NAPROXEN [Suspect]
     Active Substance: NAPROXEN
     Dosage: 20.0 MG, Q12H
     Route: 048
  12. NAPROXEN [Suspect]
     Active Substance: NAPROXEN
     Dosage: 20.0 MG, BID
     Route: 048
  13. NAPROXEN [Suspect]
     Active Substance: NAPROXEN
     Indication: Product used for unknown indication
     Dosage: 375.0 MG, Q12H
     Route: 048
  14. NAPROXEN [Suspect]
     Active Substance: NAPROXEN
     Dosage: 375.0 MG, BID
     Route: 048
  15. PREDNISONE [Suspect]
     Active Substance: PREDNISONE
     Dosage: 10.0 MG, QD
     Route: 065
  16. PREDNISONE [Suspect]
     Active Substance: PREDNISONE
     Dosage: 10.0 MG
     Route: 065
  17. PREDNISONE [Suspect]
     Active Substance: PREDNISONE
     Indication: Product used for unknown indication
     Dosage: 5.0 MG, QD
     Route: 048
  18. SULFASALAZINE [Suspect]
     Active Substance: SULFASALAZINE
     Indication: Rheumatoid arthritis
     Dosage: 1000.0 MG, Q12H
     Route: 065
  19. SULFASALAZINE [Suspect]
     Active Substance: SULFASALAZINE
     Dosage: 1000 MG
     Route: 065
  20. PANTOPRAZOLE MAGNESIUM [Suspect]
     Active Substance: PANTOPRAZOLE MAGNESIUM
     Indication: Product used for unknown indication
     Dosage: 40.0 MG, QD
     Route: 065

REACTIONS (8)
  - Back pain [Not Recovered/Not Resolved]
  - Arthralgia [Not Recovered/Not Resolved]
  - Hepatic enzyme increased [Not Recovered/Not Resolved]
  - Joint swelling [Not Recovered/Not Resolved]
  - Rash [Not Recovered/Not Resolved]
  - Rheumatoid arthritis [Not Recovered/Not Resolved]
  - Drug intolerance [Not Recovered/Not Resolved]
  - Therapeutic response decreased [Not Recovered/Not Resolved]
